FAERS Safety Report 9410955 (Version 1)
Quarter: 2013Q3

REPORT INFORMATION
  Report Type: Spontaneous
  Country: JP (occurrence: JP)
  Receive Date: 20130719
  Receipt Date: 20130719
  Transmission Date: 20140515
  Serious: Yes (Other)
  Sender: FDA-Public Use
  Company Number: JP-BAYER-2013-085647

PATIENT
  Age: 37 Year
  Sex: Female

DRUGS (5)
  1. NIFEDIPINE [Suspect]
     Indication: HYPERTENSION
     Dosage: 20 MG/DAY
     Route: 048
  2. NIFEDIPINE [Suspect]
     Indication: PRE-ECLAMPSIA
  3. BETAMETHASONE [Concomitant]
     Indication: NEONATAL RESPIRATORY DISTRESS SYNDROME PROPHYLAXIS
     Dosage: 12 MG, UNK
     Route: 030
  4. BETAMETHASONE [Concomitant]
     Indication: PRE-ECLAMPSIA
  5. RINGER LACTATE [CALCIUM CHLORIDE DIHYDRATE,POTASSIUM CHLORIDE,SODI [Concomitant]
     Indication: OLIGOHYDRAMNIOS
     Dosage: 250 ML
     Route: 012

REACTIONS (3)
  - Premature delivery [None]
  - Amniotic cavity infection [None]
  - Exposure during pregnancy [None]
